FAERS Safety Report 15588727 (Version 3)
Quarter: 2018Q4

REPORT INFORMATION
  Report Type: Report from Study
  Country: US (occurrence: US)
  Receive Date: 20181106
  Receipt Date: 20181203
  Transmission Date: 20190205
  Serious: Yes (Death, Hospitalization, Other)
  Sender: FDA-Public Use
  Company Number: US-BRISTOL-MYERS SQUIBB COMPANY-BMS-2018-089687

PATIENT
  Age: 43 Year
  Sex: Female
  Weight: 135.6 kg

DRUGS (5)
  1. OXYCODONE HYDROCHLORIDE. [Concomitant]
     Active Substance: OXYCODONE HYDROCHLORIDE
     Indication: PRODUCT USED FOR UNKNOWN INDICATION
     Dosage: 10 MG, Q6H
     Route: 065
     Dates: start: 20180907
  2. NIVOLUMAB [Suspect]
     Active Substance: NIVOLUMAB
     Indication: ENDOMETRIAL STROMAL SARCOMA
     Dosage: 240 MG, Q2WK
     Route: 042
     Dates: start: 20180726, end: 20180919
  3. EPACADOSTAT [Suspect]
     Active Substance: EPACADOSTAT
     Indication: ENDOMETRIAL STROMAL SARCOMA
     Dosage: 100 MG, BID
     Route: 048
     Dates: start: 20180726, end: 20180919
  4. IPILIMUMAB [Suspect]
     Active Substance: IPILIMUMAB
     Indication: ENDOMETRIAL STROMAL SARCOMA
     Dosage: 1 MG/KG, Q6WK
     Route: 042
     Dates: start: 20180726, end: 20180919
  5. OXYCODONE [Concomitant]
     Active Substance: OXYCODONE
     Indication: PRODUCT USED FOR UNKNOWN INDICATION
     Dosage: 30 MG, BID
     Route: 065
     Dates: start: 2016

REACTIONS (3)
  - Cholecystitis [Recovering/Resolving]
  - Pancreatitis [Recovered/Resolved]
  - Disease progression [Fatal]

NARRATIVE: CASE EVENT DATE: 20180914
